FAERS Safety Report 4939962-2 (Version None)
Quarter: 2006Q1

REPORT INFORMATION
  Report Type: 
  Country: None (occurrence: None)
  Receive Date: 20060307
  Receipt Date: 20060222
  Transmission Date: 20060701
  Serious: Yes (Hospitalization)
  Sender: FDA-Public Use
  Company Number: SUS1-2006-00229

PATIENT
  Age: 32 Year
  Sex: Female

DRUGS (11)
  1. PENTASA [Suspect]
     Indication: COLITIS ULCERATIVE
     Dosage: 500 MG, 3X/DAY:  TID, ORAL
     Route: 048
     Dates: start: 20051222, end: 20060105
  2. PENTASA [Suspect]
     Indication: COLITIS ULCERATIVE
     Dosage: 500 MG, 3X/DAY:  TID, ORAL
     Route: 048
     Dates: start: 20060106, end: 20060125
  3. THEOPHYLLINE [Concomitant]
  4. EPINASTINE HYDROCHLORIDE (EPINASTINE HYDROCHLORIDE) [Concomitant]
  5. PROCATEROL HCL [Concomitant]
  6. PRANLUKAST (PRANLUKAST) [Concomitant]
  7. SALMETEROL XINAFOATE (SALMETEROL XINAFOATE) [Concomitant]
  8. BECLOMETHASONE DIPROPIONATE [Concomitant]
  9. RABEPRAZOLE SODIUM [Concomitant]
  10. PREDNISOLONE [Concomitant]
  11. BETAMETHASONE [Concomitant]

REACTIONS (4)
  - ARTHRALGIA [None]
  - COLITIS ULCERATIVE [None]
  - CONDITION AGGRAVATED [None]
  - ENTEROCOLITIS [None]
